FAERS Safety Report 5196065-2 (Version None)
Quarter: 2006Q4

REPORT INFORMATION
  Report Type: 
  Country: None (occurrence: None)
  Receive Date: 20061226
  Receipt Date: 20061214
  Transmission Date: 20070319
  Serious: Yes (Death)
  Sender: FDA-Public Use
  Company Number: AUWYE846114DEC06

PATIENT

DRUGS (1)
  1. EFFEXOR XR [Suspect]
     Dosage: ORAL
     Route: 048

REACTIONS (3)
  - COMPLETED SUICIDE [None]
  - DRUG TOXICITY [None]
  - INJURY [None]
